FAERS Safety Report 9563453 (Version 1)
Quarter: 2013Q1

REPORT INFORMATION
  Report Type: Spontaneous
  Country: US (occurrence: None)
  Receive Date: 20121227
  Receipt Date: 20121227
  Transmission Date: 20140127
  Serious: Yes (Other)
  Sender: FDA-Public Use
  Company Number: PHEH2012US011260

PATIENT
  Age: 42 Year
  Sex: Female
  Weight: 78 kg

DRUGS (6)
  1. EXJADE [Suspect]
     Indication: IRON OVERLOAD
     Dosage: 13 MG/KG, DAILY (1000 MG, DAILY), ORAL
     Route: 048
  2. VIAGRA ( SILDENAFIL CITRATE) [Concomitant]
  3. DIGOXIN ( DIGOXIN) [Concomitant]
  4. FOLIC ACID ( FOLIC ACID) [Concomitant]
  5. HYDREA ( HYDROXYCARBAMIDE) [Concomitant]
  6. METHADONE ( METHADONE) [Concomitant]

REACTIONS (1)
  - Bile duct stone [None]
